FAERS Safety Report 12607389 (Version 1)
Quarter: 2016Q3

REPORT INFORMATION
  Report Type: Spontaneous
  Country: FR (occurrence: FR)
  Receive Date: 20160729
  Receipt Date: 20160729
  Transmission Date: 20161109
  Serious: Yes (Death, Hospitalization, Other)
  Sender: FDA-Public Use
  Company Number: FR-GILEAD-2016-0224924

PATIENT
  Age: 57 Year
  Sex: Male

DRUGS (6)
  1. EPITOMAX [Concomitant]
     Active Substance: TOPIRAMATE
  2. LORAZEPAM. [Concomitant]
     Active Substance: LORAZEPAM
  3. HYDROXYZINE [Concomitant]
     Active Substance: HYDROXYZINE\HYDROXYZINE HYDROCHLORIDE
  4. XEROQUEL [Concomitant]
     Active Substance: QUETIAPINE FUMARATE
  5. LOXAPAC                            /00401801/ [Concomitant]
     Active Substance: LOXAPINE SUCCINATE
  6. HARVONI [Suspect]
     Active Substance: LEDIPASVIR\SOFOSBUVIR
     Indication: CHRONIC HEPATITIS C
     Dosage: 1 DF, QD
     Route: 048
     Dates: start: 20160509, end: 20160627

REACTIONS (2)
  - Altered state of consciousness [Fatal]
  - Hepatocellular carcinoma [Fatal]

NARRATIVE: CASE EVENT DATE: 20160620
